FAERS Safety Report 6439478-0 (Version None)
Quarter: 2009Q4

REPORT INFORMATION
  Report Type: 
  Country: None (occurrence: None)
  Receive Date: 20091111
  Receipt Date: 20091111
  Transmission Date: 20100525
  Serious: Yes (Life-Threatening)
  Sender: FDA-Public Use
  Company Number: None

PATIENT
  Age: 50 Year
  Sex: Female

DRUGS (5)
  1. PACLITAXEL [Suspect]
     Dosage: 110 MG IN TOTAL, INTRAVENOUS
     Route: 042
     Dates: start: 20090917, end: 20090917
  2. ZOFRAN [Concomitant]
  3. TRIMETON [Concomitant]
  4. SOLU-CORTEF [Concomitant]
  5. RANITIDINE [Concomitant]

REACTIONS (6)
  - BACK PAIN [None]
  - DYSPHAGIA [None]
  - DYSPHONIA [None]
  - DYSPNOEA [None]
  - ERYTHEMA [None]
  - INFUSION RELATED REACTION [None]
